FAERS Safety Report 13801885 (Version 2)
Quarter: 2017Q3

REPORT INFORMATION
  Report Type: Spontaneous
  Country: GB (occurrence: GB)
  Receive Date: 20170727
  Receipt Date: 20170728
  Transmission Date: 20171127
  Serious: Yes (Hospitalization)
  Sender: FDA-Public Use
  Company Number: PHHY2017GB107475

PATIENT
  Sex: Female

DRUGS (5)
  1. RITUXIMAB. [Concomitant]
     Active Substance: RITUXIMAB
     Indication: POST TRANSPLANT LYMPHOPROLIFERATIVE DISORDER
     Route: 065
  2. AMPHOTERICIN [Concomitant]
     Active Substance: AMPHOTERICIN B
     Indication: FUNGAL INFECTION
     Route: 065
  3. CICLOSPORIN [Suspect]
     Active Substance: CYCLOSPORINE
     Indication: GRAFT VERSUS HOST DISEASE
     Route: 065
  4. ACYCLOVIR. [Concomitant]
     Active Substance: ACYCLOVIR
     Indication: HERPES VIRUS INFECTION
     Route: 065
  5. IMMUNOGLOBULIN I.V [Concomitant]
     Active Substance: HUMAN IMMUNOGLOBULIN G
     Indication: PROPHYLAXIS
     Dosage: 0.5 G/KG, BIW
     Route: 042

REACTIONS (14)
  - Torticollis [Unknown]
  - Musculoskeletal stiffness [Unknown]
  - Hypertonia [Recovered/Resolved]
  - Diarrhoea [Unknown]
  - Radiculopathy [Recovered/Resolved]
  - Papilloedema [Unknown]
  - Pain [Unknown]
  - Pyrexia [Recovered/Resolved]
  - Immune reconstitution inflammatory syndrome [Recovered/Resolved]
  - Irritability [Recovered/Resolved]
  - Photophobia [Unknown]
  - Depressed level of consciousness [Recovered/Resolved]
  - Crying [Unknown]
  - Hyperreflexia [Recovered/Resolved]
